FAERS Safety Report 14447905 (Version 5)
Quarter: 2018Q4

REPORT INFORMATION
  Report Type: Report from Study
  Country: GR (occurrence: GR)
  Receive Date: 20180126
  Receipt Date: 20181228
  Transmission Date: 20190204
  Serious: Yes (Hospitalization, Other)
  Sender: FDA-Public Use
  Company Number: GR-GILEAD-2018-0317339

PATIENT
  Age: 28 Year
  Sex: Male
  Weight: 80 kg

DRUGS (3)
  1. TIVICAY [Suspect]
     Active Substance: DOLUTEGRAVIR SODIUM
     Indication: HIV INFECTION
     Dosage: 1 DF, QD
     Route: 048
     Dates: start: 20180118
  2. EMTRICITABINE/TENOFOVIR DISOPROXIL FUMARATE [Suspect]
     Active Substance: EMTRICITABINE\TENOFOVIR DISOPROXIL FUMARATE
     Indication: PROPHYLAXIS AGAINST HIV INFECTION
     Dosage: 1 DF, QD
     Route: 048
     Dates: start: 20180104, end: 20180112
  3. EMTRICITABINE/TENOFOVIR DISOPROXIL FUMARATE [Suspect]
     Active Substance: EMTRICITABINE\TENOFOVIR DISOPROXIL FUMARATE
     Dosage: 1 DF, QD
     Route: 048
     Dates: start: 20180118

REACTIONS (4)
  - Acute HIV infection [Recovering/Resolving]
  - Drug ineffective [Unknown]
  - Erythema [Recovered/Resolved]
  - Proctitis [Recovered/Resolved]

NARRATIVE: CASE EVENT DATE: 20180117
